FAERS Safety Report 4581913-7 (Version None)
Quarter: 2005Q1

REPORT INFORMATION
  Report Type: 
  Country: None (occurrence: None)
  Receive Date: 20050214
  Receipt Date: 20040402
  Transmission Date: 20050727
  Serious: No
  Sender: FDA-Public Use
  Company Number: US-GLAXOSMITHKLINE-A0505685A

PATIENT
  Sex: Female

DRUGS (12)
  1. LAMICTAL [Suspect]
     Indication: BIPOLAR DISORDER
     Dosage: 100MG TWICE PER DAY
     Route: 048
     Dates: start: 20040307
  2. ZOLOFT [Concomitant]
  3. ZYPREXA [Concomitant]
  4. DITROPAN XL [Concomitant]
  5. ELMIRON [Concomitant]
  6. EVISTA [Concomitant]
  7. LACTULOSE [Concomitant]
  8. SYNTHROID [Concomitant]
  9. PREVACID [Concomitant]
  10. TYLENOL [Concomitant]
  11. COLACE [Concomitant]
  12. CALCIUM CARBONATE [Concomitant]

REACTIONS (1)
  - LIVER FUNCTION TEST ABNORMAL [None]
